FAERS Safety Report 4615752-5 (Version None)
Quarter: 2005Q1

REPORT INFORMATION
  Report Type: 
  Country: None (occurrence: None)
  Receive Date: 20050317
  Receipt Date: 20050301
  Transmission Date: 20050727
  Serious: Yes (Life-Threatening)
  Sender: FDA-Public Use
  Company Number: 1466

PATIENT
  Sex: Female

DRUGS (2)
  1. AMNESTEEM [Suspect]
     Dates: start: 20030301, end: 20030701
  2. AMNESTEEM [Suspect]
     Dates: start: 20030901, end: 20040101

REACTIONS (3)
  - CERVIX DISORDER [None]
  - PAPILLOMA VIRAL INFECTION [None]
  - PRECANCEROUS CELLS PRESENT [None]
